FAERS Safety Report 4893220-3 (Version None)
Quarter: 2006Q1

REPORT INFORMATION
  Report Type: 
  Country: None (occurrence: None)
  Receive Date: 20060127
  Receipt Date: 20060117
  Transmission Date: 20060701
  Serious: Yes (Hospitalization)
  Sender: FDA-Public Use
  Company Number: DE-BOEHRINGER INGELHEIM PHARMACEUTICALS, INC.-2006-DE-00331DE

PATIENT
  Sex: Female

DRUGS (2)
  1. AGGRENOX [Suspect]
  2. PLAVIX [Concomitant]

REACTIONS (1)
  - ADVERSE EVENT [None]
